FAERS Safety Report 16258440 (Version 5)
Quarter: 2019Q3

REPORT INFORMATION
  Report Type: Report from Study
  Country: US (occurrence: US)
  Receive Date: 20190430
  Receipt Date: 20190822
  Transmission Date: 20191004
  Serious: Yes (Hospitalization)
  Sender: FDA-Public Use
  Company Number: US-ACTELION-A-US2019-189809

PATIENT
  Age: 73 Year
  Sex: Female

DRUGS (2)
  1. OPSUMIT [Suspect]
     Active Substance: MACITENTAN
     Indication: PULMONARY ARTERIAL HYPERTENSION
     Dosage: 10 MG, QD
     Route: 048
  2. TADALAFIL. [Suspect]
     Active Substance: TADALAFIL
     Indication: PULMONARY ARTERIAL HYPERTENSION
     Dosage: UNK
     Route: 048
     Dates: start: 20190323

REACTIONS (13)
  - Hospitalisation [Unknown]
  - Headache [Unknown]
  - Arthralgia [Unknown]
  - Swelling [Unknown]
  - Osteoporosis [Not Recovered/Not Resolved]
  - Balance disorder [Unknown]
  - Skin haemorrhage [Unknown]
  - Hypotension [Not Recovered/Not Resolved]
  - Compression fracture [Not Recovered/Not Resolved]
  - Intervertebral disc protrusion [Not Recovered/Not Resolved]
  - Eye swelling [Unknown]
  - Fluid retention [Unknown]
  - Dizziness [Unknown]

NARRATIVE: CASE EVENT DATE: 2019
